FAERS Safety Report 7006115-6 (Version None)
Quarter: 2010Q3

REPORT INFORMATION
  Report Type: 
  Country: None (occurrence: None)
  Receive Date: 20100921
  Receipt Date: 20100909
  Transmission Date: 20110219
  Serious: Yes (Other)
  Sender: FDA-Public Use
  Company Number: US-PFIZER INC-2010114480

PATIENT
  Sex: Male
  Weight: 77 kg

DRUGS (4)
  1. DEPO-TESTOSTERONE [Suspect]
     Indication: BLOOD TESTOSTERONE DECREASED
     Dosage: UNK
     Dates: end: 20100801
  2. TRAZODONE [Concomitant]
     Indication: SLEEP DISORDER
     Dosage: 100 MG, 2X/DAY
     Route: 048
  3. CYMBALTA [Concomitant]
     Indication: VIOLENCE-RELATED SYMPTOM
     Dosage: 40 MG, 1X/DAY
     Route: 048
  4. VICODIN [Concomitant]
     Indication: ARTHRITIS
     Dosage: 5/500 MG, AS NEEDED
     Route: 048

REACTIONS (4)
  - DYSPNOEA [None]
  - FEELING ABNORMAL [None]
  - PAIN [None]
  - POOR QUALITY DRUG ADMINISTERED [None]
